FAERS Safety Report 10567128 (Version 1)
Quarter: 2014Q4

REPORT INFORMATION
  Report Type: Spontaneous
  Country: IT (occurrence: IT)
  Receive Date: 20141105
  Receipt Date: 20141105
  Transmission Date: 20150529
  Serious: Yes (Other)
  Sender: FDA-Public Use
  Company Number: IT-FRI-1000072072

PATIENT
  Age: 70 Year
  Sex: Male

DRUGS (4)
  1. PANTOPRAZOLO [Concomitant]
     Route: 048
     Dates: start: 20130519
  2. NEBIVOLOL [Suspect]
     Active Substance: NEBIVOLOL
     Dosage: 2.5 MG
     Route: 048
     Dates: start: 20130519
  3. CARDIOASPIRIN [Concomitant]
     Active Substance: ASPIRIN
     Route: 048
     Dates: start: 20130519
  4. ZANTIPRES [Suspect]
     Active Substance: ZOFENOPRIL
     Dosage: 15 MG
     Route: 048
     Dates: start: 20130519

REACTIONS (3)
  - Hypotension [Recovering/Resolving]
  - Fall [None]
  - Syncope [Recovering/Resolving]

NARRATIVE: CASE EVENT DATE: 20140519
